FAERS Safety Report 20871806 (Version 1)
Quarter: 2022Q2

REPORT INFORMATION
  Report Type: Spontaneous
  Country: US (occurrence: None)
  Receive Date: 20220524
  Receipt Date: 20220524
  Transmission Date: 20220721
  Serious: Yes (Disabling)
  Sender: FDA-Public Use
  Company Number: None

PATIENT
  Age: 63 Year
  Sex: Female
  Weight: 60.75 kg

DRUGS (1)
  1. DYSPORT [Suspect]
     Active Substance: ABOBOTULINUMTOXINA
     Indication: Dermatitis contact
     Dates: start: 20220510, end: 20220510

REACTIONS (2)
  - Diplopia [None]
  - Injection related reaction [None]

NARRATIVE: CASE EVENT DATE: 20220510
